APPROVED DRUG PRODUCT: DOXYCYCLINE HYCLATE
Active Ingredient: DOXYCYCLINE HYCLATE
Strength: EQ 100MG BASE
Dosage Form/Route: TABLET;ORAL
Application: A062269 | Product #002 | TE Code: AB
Applicant: EPIC PHARMA LLC
Approved: Nov 8, 1982 | RLD: No | RS: Yes | Type: RX